FAERS Safety Report 10300481 (Version 2)
Quarter: 2014Q3

REPORT INFORMATION
  Report Type: Spontaneous
  Country: US (occurrence: US)
  Receive Date: 20140713
  Receipt Date: 20140817
  Transmission Date: 20150326
  Serious: No
  Sender: FDA-Public Use
  Company Number: US-TEVA-493019USA

PATIENT
  Sex: Female
  Weight: 57.66 kg

DRUGS (1)
  1. NUVIGIL [Suspect]
     Active Substance: ARMODAFINIL
     Indication: SLEEP DISORDER DUE TO GENERAL MEDICAL CONDITION, HYPERSOMNIA TYPE
     Dates: start: 20140430

REACTIONS (3)
  - Pruritus [Unknown]
  - Chest pain [Unknown]
  - Insomnia [Unknown]

NARRATIVE: CASE EVENT DATE: 2014
